FAERS Safety Report 20637457 (Version 1)
Quarter: 2022Q1

REPORT INFORMATION
  Report Type: Spontaneous
  Country: US (occurrence: None)
  Receive Date: 20220324
  Receipt Date: 20220324
  Transmission Date: 20220423
  Serious: Yes (Death)
  Sender: FDA-Public Use
  Company Number: None

PATIENT
  Age: 72 Year
  Sex: Female

DRUGS (7)
  1. VERZENIO [Suspect]
     Active Substance: ABEMACICLIB
     Indication: Breast cancer
     Dosage: FREQUENCY : TWICE A DAY;?
     Route: 048
     Dates: start: 20190729, end: 20220318
  2. CLOPIDOGREL [Concomitant]
     Active Substance: CLOPIDOGREL BISULFATE
     Dates: end: 20220318
  3. ENALAPRIL [Concomitant]
     Active Substance: ENALAPRIL
     Dates: end: 20220318
  4. GABAPENTIN [Concomitant]
     Active Substance: GABAPENTIN
     Dates: end: 20220318
  5. LATANOPROST [Concomitant]
     Active Substance: LATANOPROST
     Dates: end: 20220318
  6. OMEPRAZOLE [Concomitant]
     Active Substance: OMEPRAZOLE
     Dates: end: 20220318
  7. Levemir Solution [Concomitant]
     Dates: end: 20220318

REACTIONS (1)
  - Death [None]

NARRATIVE: CASE EVENT DATE: 20220318
